FAERS Safety Report 12321977 (Version 1)
Quarter: 2016Q2

REPORT INFORMATION
  Report Type: Spontaneous
  Country: US (occurrence: US)
  Receive Date: 20160502
  Receipt Date: 20160502
  Transmission Date: 20160815
  Serious: No
  Sender: FDA-Public Use
  Company Number: US-GLAXOSMITHKLINE-US2016053954

PATIENT
  Sex: Female

DRUGS (1)
  1. NUCALA [Suspect]
     Active Substance: MEPOLIZUMAB
     Indication: ASTHMA
     Dosage: 100 MG, VA
     Dates: start: 201602

REACTIONS (3)
  - Sinus congestion [Recovered/Resolved]
  - Paranasal sinus discomfort [Recovered/Resolved]
  - Fatigue [Recovered/Resolved]
